FAERS Safety Report 8452063 (Version 2)
Quarter: 2013Q2

REPORT INFORMATION
  Report Type: Spontaneous
  Country: US (occurrence: None)
  Receive Date: 20120221
  Receipt Date: 20130226
  Transmission Date: 20140414
  Serious: Yes (Hospitalization)
  Sender: FDA-Public Use
  Company Number: PHEH2011US010213

PATIENT
  Age: 71 Year
  Sex: Female
  Weight: 55.8 kg

DRUGS (1)
  1. TOBI [Suspect]
     Indication: BRONCHIECTASIS
     Dosage: 300 MG, BID, INHALATION
     Route: 055
     Dates: start: 20111117, end: 20111119

REACTIONS (5)
  - DYSPNOEA [None]
  - CHEST PAIN [None]
  - ASTHENIA [None]
  - Dizziness [None]
  - Pruritus [None]
